FAERS Safety Report 11557248 (Version 2)
Quarter: 2015Q3

REPORT INFORMATION
  Report Type: Spontaneous
  Country: CH (occurrence: CH)
  Receive Date: 20150925
  Receipt Date: 20150928
  Transmission Date: 20151125
  Serious: Yes (Death, Other)
  Sender: FDA-Public Use
  Company Number: CH-ASTRAZENECA-2015SE91686

PATIENT
  Age: 72 Year
  Sex: Male

DRUGS (21)
  1. MEROPENEM. [Suspect]
     Active Substance: MEROPENEM
     Indication: PNEUMONIA
     Route: 041
     Dates: start: 20150709, end: 20150718
  2. AMLODIPIN [Concomitant]
     Active Substance: AMLODIPINE BESYLATE
     Route: 048
  3. IPRATROPIUM [Concomitant]
     Active Substance: IPRATROPIUM
     Route: 055
  4. CEFEPIME [Concomitant]
     Active Substance: CEFEPIME HYDROCHLORIDE
     Route: 041
     Dates: start: 20150805, end: 20150809
  5. MEROPENEM. [Suspect]
     Active Substance: MEROPENEM
     Indication: PSEUDOMONAL BACTERAEMIA
     Route: 041
     Dates: start: 20150709, end: 20150718
  6. SALBUTAMOL [Concomitant]
     Active Substance: ALBUTEROL
     Route: 055
  7. KLACID [Concomitant]
     Active Substance: CLARITHROMYCIN
     Route: 041
     Dates: start: 20150629, end: 20150703
  8. TAZOBAC [Suspect]
     Active Substance: PIPERACILLIN SODIUM\TAZOBACTAM SODIUM
     Route: 041
     Dates: start: 20150727, end: 20150802
  9. LASIX [Concomitant]
     Active Substance: FUROSEMIDE
     Route: 041
     Dates: start: 20150703, end: 20150811
  10. MEROPENEM. [Suspect]
     Active Substance: MEROPENEM
     Indication: PNEUMONIA
     Route: 041
     Dates: start: 20150725, end: 20150727
  11. MEROPENEM. [Suspect]
     Active Substance: MEROPENEM
     Indication: PSEUDOMONAL BACTERAEMIA
     Route: 041
     Dates: start: 20150725, end: 20150727
  12. BUPRENORPHINE HYDROCHLORIDE. [Concomitant]
     Active Substance: BUPRENORPHINE HYDROCHLORIDE
     Route: 060
  13. ATARAX [Concomitant]
     Active Substance: HYDROXYZINE\HYDROXYZINE HYDROCHLORIDE
     Route: 048
     Dates: start: 20150704, end: 20150708
  14. HALDOL [Concomitant]
     Active Substance: HALOPERIDOL
  15. ROCEPHINE [Concomitant]
     Active Substance: CEFTRIAXONE SODIUM
     Route: 041
     Dates: start: 20150629, end: 20150703
  16. PULMICORT TURBUHALER [Concomitant]
     Active Substance: BUDESONIDE
     Route: 055
  17. DISTRANEURIN [Concomitant]
     Active Substance: CLOMETHIAZOLE
     Route: 048
  18. AMIKACIN [Concomitant]
     Active Substance: AMIKACIN
     Route: 041
     Dates: start: 20150805, end: 20150806
  19. TOREM [Concomitant]
     Active Substance: TORSEMIDE
     Route: 048
     Dates: start: 20150728, end: 20150804
  20. METOPROLOL [Concomitant]
     Active Substance: METOPROLOL
     Route: 048
  21. CEFEPIME [Concomitant]
     Active Substance: CEFEPIME HYDROCHLORIDE
     Route: 041
     Dates: start: 20150703, end: 20150709

REACTIONS (6)
  - Eosinophilia [Recovered/Resolved]
  - Acute kidney injury [Fatal]
  - Septic shock [Fatal]
  - Tubulointerstitial nephritis [Fatal]
  - Multi-organ failure [Fatal]
  - Acute respiratory distress syndrome [Fatal]

NARRATIVE: CASE EVENT DATE: 20150712
